FAERS Safety Report 21551622 (Version 1)
Quarter: 2022Q4

REPORT INFORMATION
  Report Type: Report from Study
  Country: US (occurrence: US)
  Receive Date: 20221103
  Receipt Date: 20221103
  Transmission Date: 20230113
  Serious: No
  Sender: FDA-Public Use
  Company Number: US-ABBVIE-4184443

PATIENT
  Sex: Male

DRUGS (1)
  1. VENCLEXTA [Suspect]
     Active Substance: VENETOCLAX
     Indication: Myelodysplastic syndrome
     Dosage: 1 TABLET ON DAY 1, ?2 TABLETS ON DAY 2, ?4 TABLETS ON DAYS 3-14
     Route: 048

REACTIONS (2)
  - Off label use [Unknown]
  - Off label use [Unknown]
